FAERS Safety Report 6247756-3 (Version None)
Quarter: 2009Q2

REPORT INFORMATION
  Report Type: 
  Country: None (occurrence: None)
  Receive Date: 20090626
  Receipt Date: 20090616
  Transmission Date: 20091009
  Serious: Yes (Other)
  Sender: FDA-Public Use
  Company Number: GB-ELI_LILLY_AND_COMPANY-GB200906003591

PATIENT
  Age: 50 Year
  Sex: Female
  Weight: 65 kg

DRUGS (2)
  1. FLUOXETINE HCL [Suspect]
     Indication: DEPRESSION
     Dosage: 20 MG, DAILY (1/D)
     Route: 048
     Dates: start: 20080227
  2. NORINYL 1+35 28-DAY [Concomitant]
     Indication: CONTRACEPTION
     Dosage: 350 UG, UNK
     Route: 048
     Dates: start: 20071029

REACTIONS (2)
  - PRESBYACUSIS [None]
  - TINNITUS [None]
